FAERS Safety Report 8896395 (Version 1)
Quarter: 2012Q4

REPORT INFORMATION
  Report Type: Spontaneous
  Country: GB (occurrence: None)
  Receive Date: 20121102
  Receipt Date: 20121102
  Transmission Date: 20130627
  Serious: Yes (Other)
  Sender: FDA-Public Use
  Company Number: 1464552

PATIENT
  Age: 71 Year
  Sex: Female
  Weight: 37.65 kg

DRUGS (4)
  1. CALCIUM FOLINATE [Suspect]
     Indication: METASTATIC COLORECTAL CANCER
     Route: 042
     Dates: start: 20060703, end: 20061109
  2. IRINOTECAN HYDROCHLORIDE [Suspect]
  3. FLUOROURACIL [Suspect]
     Dosage: 400 NOS BOLUS AND 1200 NOS
     Dates: start: 20040703, end: 20061109
  4. ELOXATIN [Suspect]
     Dosage: 85 MG/M2 MILLIGRAM(S) SQ. METER.
     Dates: start: 20060703, end: 20061109

REACTIONS (5)
  - Neurotoxicity [None]
  - Asthenia [None]
  - Areflexia [None]
  - Paraesthesia [None]
  - Constipation [None]
